FAERS Safety Report 9482166 (Version 1)
Quarter: 2013Q3

REPORT INFORMATION
  Report Type: Report from Study
  Country: US (occurrence: US)
  Receive Date: 20130828
  Receipt Date: 20130828
  Transmission Date: 20140515
  Serious: Yes (Hospitalization)
  Sender: FDA-Public Use
  Company Number: US-US-EMD SERONO, INC.-7232959

PATIENT
  Age: 44 Year
  Sex: Female

DRUGS (3)
  1. REBIF [Suspect]
     Indication: MULTIPLE SCLEROSIS
     Route: 058
     Dates: start: 20110907, end: 201306
  2. REBIF [Suspect]
     Route: 058
     Dates: start: 2013
  3. ADVIL                              /00109201/ [Concomitant]
     Indication: PREMEDICATION

REACTIONS (3)
  - Colitis [Unknown]
  - Injection site discolouration [Not Recovered/Not Resolved]
  - Injection site pain [Not Recovered/Not Resolved]
